FAERS Safety Report 12932720 (Version 4)
Quarter: 2016Q4

REPORT INFORMATION
  Report Type: Spontaneous
  Country: TR (occurrence: TR)
  Receive Date: 20161111
  Receipt Date: 20161222
  Transmission Date: 20170207
  Serious: Yes (Life-Threatening)
  Sender: FDA-Public Use
  Company Number: PHHY2016TR154501

PATIENT
  Age: 48 Year
  Sex: Female
  Weight: 76 kg

DRUGS (4)
  1. FINGYA [Suspect]
     Active Substance: FINGOLIMOD
     Indication: RELAPSING-REMITTING MULTIPLE SCLEROSIS
     Dosage: 0.5 MG, QD
     Route: 048
     Dates: start: 201507, end: 20160927
  2. EUTHYROX [Concomitant]
     Active Substance: LEVOTHYROXINE SODIUM
     Indication: HYPOTHYROIDISM
     Dosage: 150 UG, QD
     Route: 048
     Dates: start: 2014
  3. EUTHYROX [Concomitant]
     Active Substance: LEVOTHYROXINE SODIUM
     Dosage: 75 UG, QD
     Route: 048
     Dates: start: 2014
  4. LIORESAL [Concomitant]
     Active Substance: BACLOFEN
     Indication: MULTIPLE SCLEROSIS
     Dosage: 0.5 DF, QD
     Route: 048
     Dates: start: 20160822, end: 20160927

REACTIONS (22)
  - Concomitant disease aggravated [Not Recovered/Not Resolved]
  - Contusion [Not Recovered/Not Resolved]
  - Hepatitis A antibody positive [Unknown]
  - Dizziness [Unknown]
  - Haemoglobin decreased [Unknown]
  - Ecchymosis [Unknown]
  - Balance disorder [Unknown]
  - Epstein-Barr virus antigen positive [Unknown]
  - Immune thrombocytopenic purpura [Not Recovered/Not Resolved]
  - Lymphocyte count decreased [Unknown]
  - Platelet count decreased [Not Recovered/Not Resolved]
  - Megakaryocytes abnormal [Unknown]
  - Haemoptysis [Not Recovered/Not Resolved]
  - Monocyte percentage increased [Unknown]
  - Epstein-Barr virus antibody positive [Unknown]
  - Granulocyte count increased [Unknown]
  - Cytomegalovirus test positive [Unknown]
  - Epistaxis [Unknown]
  - Antinuclear antibody positive [Unknown]
  - C-reactive protein increased [Unknown]
  - White blood cell count decreased [Unknown]
  - Gingival bleeding [Not Recovered/Not Resolved]

NARRATIVE: CASE EVENT DATE: 20160621
